FAERS Safety Report 13280464 (Version 1)
Quarter: 2017Q1

REPORT INFORMATION
  Report Type: Spontaneous
  Country: US (occurrence: US)
  Receive Date: 20170228
  Receipt Date: 20170228
  Transmission Date: 20170428
  Serious: Yes (Disabling)
  Sender: FDA-Public Use
  Company Number: None

PATIENT
  Age: 15 Year
  Sex: Male
  Weight: 58.5 kg

DRUGS (1)
  1. MIRALAX [Suspect]
     Active Substance: POLYETHYLENE GLYCOL 3350
     Indication: ENCOPRESIS
     Dosage: TWICE A DAY ORAL 2 CAPS?
     Route: 048

REACTIONS (7)
  - Drug administered to patient of inappropriate age [None]
  - Sleep disorder [None]
  - Nausea [None]
  - Palpitations [None]
  - Hyperhidrosis [None]
  - Muscle twitching [None]
  - Abdominal pain [None]

NARRATIVE: CASE EVENT DATE: 20170217
